FAERS Safety Report 4548553-7 (Version None)
Quarter: 2005Q1

REPORT INFORMATION
  Report Type: 
  Country: None (occurrence: None)
  Receive Date: 20050106
  Receipt Date: 20050103
  Transmission Date: 20050727
  Serious: Yes (Hospitalization, Other)
  Sender: FDA-Public Use
  Company Number: KII-2004-0014388

PATIENT
  Age: 56 Year
  Sex: Female

DRUGS (18)
  1. MORPHINE SULFATE [Suspect]
     Dosage: SEE TEXT, ORAL
     Route: 048
  2. SSRI [Concomitant]
  3. GLUCOSAMINE (GLUCOSAMINE) [Concomitant]
  4. ETODOLAC [Concomitant]
  5. METHYLPHENIDATE HCL [Concomitant]
  6. ACETYLSALICYLIC ACID SRT [Concomitant]
  7. MOBIC [Concomitant]
  8. METFORMIN HCL [Concomitant]
  9. FOLATE SODIUM (FOLATE SODIUM) [Concomitant]
  10. LORATADINE [Concomitant]
  11. GLIPIZIDE [Concomitant]
  12. CEPHALEXIN [Concomitant]
  13. MAGNESIUM [Concomitant]
  14. VITAMIN B12 [Concomitant]
  15. ANTIHISTAMINES FOR SYSTEMIC USE [Concomitant]
  16. MULTIPLE VITAMINS (ERGOCALCIFERO, ASCORBIC ACID, TOCOPHEROL, FOLIC ACI [Concomitant]
  17. ACE INHIBITOR NOS [Concomitant]
  18. CYCLOBENZAPRINE (CYCLOBENZAPRINE) [Concomitant]

REACTIONS (8)
  - AGITATION [None]
  - HEART RATE INCREASED [None]
  - LETHARGY [None]
  - MIOSIS [None]
  - OVERDOSE [None]
  - OXYGEN SATURATION DECREASED [None]
  - RESPIRATORY DEPRESSION [None]
  - SOMNOLENCE [None]
